FAERS Safety Report 9562205 (Version 5)
Quarter: 2013Q4

REPORT INFORMATION
  Report Type: Report from Study
  Country: BE (occurrence: BE)
  Receive Date: 20130927
  Receipt Date: 20131114
  Transmission Date: 20140711
  Serious: No
  Sender: FDA-Public Use
  Company Number: PHHY2013BE020771

PATIENT
  Age: 46 Year
  Sex: Male
  Weight: 72 kg

DRUGS (4)
  1. FTY 720 [Suspect]
     Indication: RELAPSING-REMITTING MULTIPLE SCLEROSIS
     Dosage: 0.5 MG, QD
     Route: 048
     Dates: start: 20130221
  2. LIORESAL [Concomitant]
     Indication: MUSCLE SPASTICITY
     Dosage: 10 MG, UNK
     Route: 048
  3. CRESTOR [Concomitant]
     Indication: BLOOD CHOLESTEROL
     Dosage: 10 MG, UNK
     Route: 048
  4. RIVOTRIL [Concomitant]
     Indication: MUSCLE SPASTICITY

REACTIONS (9)
  - Choking sensation [Recovered/Resolved]
  - Visual acuity reduced [Recovered/Resolved]
  - Chest discomfort [Recovered/Resolved]
  - Palpitations [Unknown]
  - Chest pain [Recovered/Resolved]
  - Muscle spasms [Unknown]
  - Extrasystoles [Unknown]
  - Stress [Unknown]
  - Fatigue [Unknown]
